FAERS Safety Report 6071506-7 (Version None)
Quarter: 2009Q1

REPORT INFORMATION
  Report Type: 
  Country: None (occurrence: None)
  Receive Date: 20090209
  Receipt Date: 20090209
  Transmission Date: 20090719
  Serious: No
  Sender: FDA-Public Use
  Company Number: None

PATIENT
  Sex: Male
  Weight: 77.1115 kg

DRUGS (2)
  1. HYDROCODONE BITARTRATE + ACETAMINOPHEN [Suspect]
     Indication: TIBIA FRACTURE
     Dosage: 7.5/750 2Q4 PO 2004 + PRIOR
     Route: 048
     Dates: start: 20040101
  2. VICODIN ES [Suspect]

REACTIONS (4)
  - ABDOMINAL DISCOMFORT [None]
  - CONSTIPATION [None]
  - PRODUCT QUALITY ISSUE [None]
  - TREATMENT FAILURE [None]
